FAERS Safety Report 22375419 (Version 1)
Quarter: 2023Q2

REPORT INFORMATION
  Report Type: Spontaneous
  Country: US (occurrence: US)
  Receive Date: 20230527
  Receipt Date: 20230527
  Transmission Date: 20230721
  Serious: No
  Sender: FDA-Public Use
  Company Number: US-PERRIGO-22US011631

PATIENT
  Age: 59 Year
  Sex: Male
  Weight: 108.84 kg

DRUGS (3)
  1. MINOXIDIL [Suspect]
     Active Substance: MINOXIDIL
     Indication: Alopecia
     Dosage: UNKNOWN, SINGLE INTO LEFT EYE
     Route: 047
     Dates: start: 20220824, end: 20220824
  2. MINOXIDIL [Suspect]
     Active Substance: MINOXIDIL
     Dosage: UNKNOWN, SINGLE DOWN FOREHEAD
     Route: 061
     Dates: start: 20220824, end: 20220824
  3. MINOXIDIL [Suspect]
     Active Substance: MINOXIDIL
     Dosage: HALF CAPFUL, BID
     Route: 061
     Dates: start: 202206

REACTIONS (2)
  - Eye irritation [Recovered/Resolved]
  - Accidental exposure to product [Unknown]

NARRATIVE: CASE EVENT DATE: 20220824
